FAERS Safety Report 17544796 (Version 3)
Quarter: 2020Q2

REPORT INFORMATION
  Report Type: Spontaneous
  Country: DE (occurrence: DE)
  Receive Date: 20200316
  Receipt Date: 20200622
  Transmission Date: 20200713
  Serious: Yes (Other)
  Sender: FDA-Public Use
  Company Number: DE-PFIZER INC-2020109403

PATIENT
  Sex: Male

DRUGS (1)
  1. MISOPROSTOL. [Suspect]
     Active Substance: MISOPROSTOL
     Indication: LABOUR INDUCTION
     Dosage: 0.25 DF, 3X/DAY
     Dates: end: 20180412

REACTIONS (4)
  - Foetal exposure during delivery [Unknown]
  - Foetal heart rate decreased [Recovered/Resolved]
  - Foetal distress syndrome [Unknown]
  - Speech disorder developmental [Unknown]
